FAERS Safety Report 7210343-4 (Version None)
Quarter: 2011Q1

REPORT INFORMATION
  Report Type: 
  Country: None (occurrence: None)
  Receive Date: 20110103
  Receipt Date: 20110103
  Transmission Date: 20110831
  Serious: Yes (Hospitalization)
  Sender: FDA-Public Use
  Company Number: None

PATIENT
  Age: 54 Year
  Sex: Male
  Weight: 83 kg

DRUGS (2)
  1. CEFTRIAXONE [Suspect]
     Indication: URINARY TRACT INFECTION
     Dosage: 1 GM EVERY DAY IV
     Route: 042
     Dates: start: 20101202, end: 20101203
  2. AMOXICILLIN AND CLAVULANATE POTASSIUM [Suspect]
     Indication: URINARY TRACT INFECTION
     Dosage: 1 TAB BID PO
     Route: 048
     Dates: start: 20101203, end: 20101210

REACTIONS (5)
  - VOMITING [None]
  - DEHYDRATION [None]
  - NAUSEA [None]
  - CLOSTRIDIUM TEST POSITIVE [None]
  - DIARRHOEA [None]
